FAERS Safety Report 16979447 (Version 3)
Quarter: 2020Q1

REPORT INFORMATION
  Report Type: Spontaneous
  Country: JP (occurrence: JP)
  Receive Date: 20191031
  Receipt Date: 20200304
  Transmission Date: 20200409
  Serious: Yes (Hospitalization)
  Sender: FDA-Public Use
  Company Number: JP-ASTRAZENECA-2019SE78023

PATIENT
  Age: 80 Year
  Sex: Male

DRUGS (10)
  1. ZETIA [Concomitant]
     Active Substance: EZETIMIBE
     Dosage: UNKNOWN
  2. BRILINTA [Concomitant]
     Active Substance: TICAGRELOR
  3. REPATHA [Suspect]
     Active Substance: EVOLOCUMAB
     Route: 058
     Dates: start: 201908, end: 20191215
  4. LUNESTA [Concomitant]
     Active Substance: ESZOPICLONE
     Route: 048
  5. SYMBICORT [Suspect]
     Active Substance: BUDESONIDE\FORMOTEROL FUMARATE DIHYDRATE
     Indication: CHRONIC OBSTRUCTIVE PULMONARY DISEASE
     Dosage: 30 DOSES, DOSE UNKNOWN UNKNOWN
     Route: 055
  6. BAYASPIRIN [Concomitant]
     Active Substance: ASPIRIN
     Route: 048
  7. FLIVAS [Concomitant]
     Active Substance: NAFTOPIDIL
     Indication: BENIGN PROSTATIC HYPERPLASIA
  8. LENDORMIN [Concomitant]
     Active Substance: BROTIZOLAM
     Dosage: UNKNOWN
  9. DEPAS [Concomitant]
     Dosage: UNKNOWN
  10. LIPITOR [Suspect]
     Active Substance: ATORVASTATIN CALCIUM
     Indication: MYOCARDIAL INFARCTION
     Dosage: DOSE UNKNOWN
     Route: 048

REACTIONS (7)
  - Insomnia [Unknown]
  - Gait disturbance [Unknown]
  - Drug eruption [Unknown]
  - Device occlusion [Unknown]
  - Chest discomfort [Unknown]
  - Headache [Unknown]
  - Dizziness [Unknown]

NARRATIVE: CASE EVENT DATE: 2019
